FAERS Safety Report 7159592-4 (Version None)
Quarter: 2010Q4

REPORT INFORMATION
  Report Type: 
  Country: None (occurrence: None)
  Receive Date: 20101214
  Receipt Date: 20100924
  Transmission Date: 20110411
  Serious: No
  Sender: FDA-Public Use
  Company Number: US-ASTRAZENECA-2010SE45279

PATIENT
  Age: 68 Year
  Sex: Female
  Weight: 68 kg

DRUGS (4)
  1. CRESTOR [Suspect]
     Indication: HYPERCHOLESTEROLAEMIA
     Route: 048
     Dates: start: 20090101, end: 20090101
  2. EFFIENT [Concomitant]
     Indication: ANTIPLATELET THERAPY
  3. MEDICATIONS FOR BLOOD PRESSURE [Concomitant]
  4. MEDICATIONS FOR HIGH CHOLESTEROL [Concomitant]

REACTIONS (1)
  - PAIN [None]
